FAERS Safety Report 14788613 (Version 2)
Quarter: 2018Q2

REPORT INFORMATION
  Report Type: Spontaneous
  Country: BS (occurrence: BS)
  Receive Date: 20180423
  Receipt Date: 20180427
  Transmission Date: 20180711
  Serious: Yes (Death, Hospitalization, Other)
  Sender: FDA-Public Use
  Company Number: BS-B.I. PHARMACEUTICALS,INC./RIDGEFIELD-2018-BI-021758

PATIENT
  Age: 71 Year
  Sex: Female

DRUGS (1)
  1. PRADAXA [Suspect]
     Active Substance: DABIGATRAN ETEXILATE MESYLATE
     Indication: ATRIAL FIBRILLATION
     Route: 065

REACTIONS (7)
  - Pain in extremity [Unknown]
  - Unresponsive to stimuli [Unknown]
  - Pulmonary embolism [Unknown]
  - Mouth haemorrhage [Unknown]
  - Epistaxis [Unknown]
  - Death [Fatal]
  - International normalised ratio abnormal [Unknown]

NARRATIVE: CASE EVENT DATE: 20180418
